FAERS Safety Report 9698868 (Version 1)
Quarter: 2013Q4

REPORT INFORMATION
  Report Type: Spontaneous
  Country: US (occurrence: US)
  Receive Date: 20131120
  Receipt Date: 20131120
  Transmission Date: 20140711
  Serious: No
  Sender: FDA-Public Use
  Company Number: US-TARO-2013P1006248

PATIENT
  Age: 83 Year
  Sex: Female
  Weight: 50.35 kg

DRUGS (3)
  1. TRIAMCINOLONE ACETONIDE DENTAL PASTE USP 0.1% [Suspect]
     Route: 061
     Dates: start: 20130516, end: 20130516
  2. CO BONO PREMIUM BONE BUILDING PACK [Concomitant]
  3. PANTOPRAZOLE [Concomitant]

REACTIONS (5)
  - Nausea [Recovered/Resolved]
  - Vomiting [Recovered/Resolved]
  - Tremor [Recovering/Resolving]
  - Fatigue [Recovering/Resolving]
  - Asthenia [Not Recovered/Not Resolved]
